FAERS Safety Report 5129077-5 (Version None)
Quarter: 2006Q4

REPORT INFORMATION
  Report Type: 
  Country: None (occurrence: None)
  Receive Date: 20061011
  Receipt Date: 20060925
  Transmission Date: 20070319
  Serious: Yes (Other)
  Sender: FDA-Public Use
  Company Number: PAR_0842_2006

PATIENT
  Sex: Female
  Weight: 56.246 kg

DRUGS (2)
  1. MIDOL [Suspect]
     Indication: MENSTRUAL DISORDER
     Dosage: 200 MG ONCE PO
     Route: 048
  2. MIDOL [Suspect]
     Indication: MENSTRUAL DISORDER
     Dosage: 500 MG ONCE PO
     Route: 048

REACTIONS (4)
  - ANXIETY [None]
  - DEPRESSION [None]
  - PANIC ATTACK [None]
  - SUICIDAL IDEATION [None]
